FAERS Safety Report 6615310-7 (Version None)
Quarter: 2010Q1

REPORT INFORMATION
  Report Type: 
  Country: None (occurrence: None)
  Receive Date: 20100226
  Receipt Date: 20100212
  Transmission Date: 20100710
  Serious: Yes (Other)
  Sender: FDA-Public Use
  Company Number: 230203J09GBR

PATIENT
  Age: 52 Year
  Sex: Female

DRUGS (1)
  1. REBIF [Suspect]
     Dosage: 22 MCG, 3 IN, SUBCUTANEOUS
     Route: 058
     Dates: start: 19970101

REACTIONS (6)
  - ARTHRALGIA [None]
  - DISLOCATION OF VERTEBRA [None]
  - FALL [None]
  - JOINT STIFFNESS [None]
  - NERVE COMPRESSION [None]
  - NERVE INJURY [None]
